FAERS Safety Report 7347296-4 (Version None)
Quarter: 2011Q1

REPORT INFORMATION
  Report Type: 
  Country: None (occurrence: None)
  Receive Date: 20110303
  Receipt Date: 20110211
  Transmission Date: 20110831
  Serious: Yes (Life-Threatening, Other)
  Sender: FDA-Public Use
  Company Number: JPI-C-013695

PATIENT
  Age: 30 Year
  Sex: Female
  Weight: 63 kg

DRUGS (3)
  1. SODIUM OXYBATE [Suspect]
     Dosage: (4.5 GM, ONCE), ORAL) (4.5 GM, ONCE, ORAL) (4.5 GM, ONCE, ORAL)
     Route: 048
     Dates: start: 20110128, end: 20110128
  2. SODIUM OXYBATE [Suspect]
     Dosage: (4.5 GM, ONCE), ORAL) (4.5 GM, ONCE, ORAL) (4.5 GM, ONCE, ORAL)
     Route: 048
     Dates: start: 20110124, end: 20110124
  3. SODIUM OXYBATE [Suspect]
     Dosage: (4.5 GM, ONCE), ORAL) (4.5 GM, ONCE, ORAL) (4.5 GM, ONCE, ORAL)
     Route: 048
     Dates: start: 20110126, end: 20110126

REACTIONS (15)
  - UNRESPONSIVE TO STIMULI [None]
  - VOMITING [None]
  - DIZZINESS [None]
  - AGITATION [None]
  - PANIC REACTION [None]
  - RESPIRATORY ARREST [None]
  - SOMNOLENCE [None]
  - HEADACHE [None]
  - HYPERVENTILATION [None]
  - CYANOSIS [None]
  - ANXIETY [None]
  - LETHARGY [None]
  - APNOEA [None]
  - OROPHARYNGEAL PAIN [None]
  - SINUS TACHYCARDIA [None]
